FAERS Safety Report 18010169 (Version 1)
Quarter: 2020Q3

REPORT INFORMATION
  Report Type: Spontaneous
  Country: US (occurrence: US)
  Receive Date: 20200710
  Receipt Date: 20200710
  Transmission Date: 20201103
  Serious: Yes (Other)
  Sender: FDA-Public Use
  Company Number: US-PFIZER INC-2016467765

PATIENT
  Age: 67 Year
  Sex: Female

DRUGS (9)
  1. STALEVO [Concomitant]
     Active Substance: CARBIDOPA\ENTACAPONE\LEVODOPA
     Dosage: UNK,(1 1/2 PO (PER ORAL) 5XDAILY)
     Route: 048
  2. VITAMIN D2 [Concomitant]
     Active Substance: ERGOCALCIFEROL
     Dosage: 50000 IU, WEEKLY
     Route: 048
     Dates: start: 20140307
  3. ULTRAM [Concomitant]
     Active Substance: TRAMADOL HYDROCHLORIDE
     Dosage: 50 MG, 2X/DAY (ONE PO (PER ORAL) BID (TWO TIMES A DAY))
     Route: 048
  4. ZITHROMAX [Concomitant]
     Active Substance: AZITHROMYCIN DIHYDRATE
     Dosage: UNK (TAKE AS DIRECTED WITH FOOD)
  5. LORTAB [Concomitant]
     Active Substance: ACETAMINOPHEN\HYDROCODONE BITARTRATE
     Dosage: (5? 325 MG ORAL TABLET/ONE HALF TO ONE AT HS (TAKE AT BEDTIME))
     Route: 048
  6. LISINOPRIL. [Concomitant]
     Active Substance: LISINOPRIL
     Dosage: 10 MG, DAILY
     Route: 048
     Dates: start: 20200530
  7. ATIVAN [Concomitant]
     Active Substance: LORAZEPAM
     Dosage: 0.5 MG, 3X/DAY
     Route: 048
     Dates: start: 20120710
  8. LYRICA [Suspect]
     Active Substance: PREGABALIN
     Dosage: 50 MG, 2X/DAY (ONE PO (PER ORAL) BID (TWO TIMES A DAY))
     Route: 048
  9. NAPROXEN. [Concomitant]
     Active Substance: NAPROXEN
     Dosage: 500 MG, AS NEEDED (TAKE 1 TABLET (500 MG) BY MOUTH 2 TIMES PER DAY AS NEEDED)
     Route: 048

REACTIONS (3)
  - Sleep disorder [Unknown]
  - Pain in extremity [Unknown]
  - Parkinson^s disease [Unknown]
